FAERS Safety Report 5671496-2 (Version None)
Quarter: 2008Q1

REPORT INFORMATION
  Report Type: 
  Country: None (occurrence: None)
  Receive Date: 20080313
  Receipt Date: 20080307
  Transmission Date: 20080703
  Serious: Yes (Death)
  Sender: FDA-Public Use
  Company Number: 114-21880-08030439

PATIENT
  Age: 72 Year
  Sex: Male
  Weight: 80 kg

DRUGS (5)
  1. REVLIMID (LENALIDOMIDE) (CAPSULES) [Suspect]
     Indication: MULTIPLE MYELOMA
     Dosage: 10 MG, DAILY, ORAL
     Route: 048
     Dates: start: 20080223, end: 20080302
  2. REVLIMID (LENALIDOMIDE) (CAPSULES) [Suspect]
     Indication: PANCYTOPENIA
     Dosage: 10 MG, DAILY, ORAL
     Route: 048
     Dates: start: 20080223, end: 20080302
  3. ASCAL (ACETYLSALICYLATE CALCIUM) [Concomitant]
  4. FUROSEMIDE [Concomitant]
  5. DEXAMETHASONE TAB [Concomitant]

REACTIONS (4)
  - BRAIN OEDEMA [None]
  - FALL [None]
  - HEAD INJURY [None]
  - SUBDURAL HAEMATOMA [None]
